FAERS Safety Report 4594043-5 (Version None)
Quarter: 2005Q1

REPORT INFORMATION
  Report Type: 
  Country: None (occurrence: None)
  Receive Date: 20050301
  Receipt Date: 20041220
  Transmission Date: 20050727
  Serious: Yes (Life-Threatening)
  Sender: FDA-Public Use
  Company Number: US-MERCK-0412USA02508

PATIENT
  Age: 64 Year
  Sex: Female
  Weight: 89 kg

DRUGS (7)
  1. VIOXX [Suspect]
     Indication: FIBROMYALGIA
     Route: 048
     Dates: start: 19990101, end: 20041001
  2. VIOXX [Suspect]
     Route: 048
  3. VIOXX [Suspect]
     Route: 048
  4. VIOXX [Suspect]
     Indication: PAIN
     Route: 048
     Dates: start: 19990101, end: 20041001
  5. VIOXX [Suspect]
     Route: 048
  6. VIOXX [Suspect]
     Route: 048
  7. PREVACID [Concomitant]
     Route: 065

REACTIONS (3)
  - CARDIAC DISORDER [None]
  - MUSCLE SPASMS [None]
  - PRESCRIBED OVERDOSE [None]
